FAERS Safety Report 17452522 (Version 1)
Quarter: 2020Q1

REPORT INFORMATION
  Report Type: Spontaneous
  Country: US (occurrence: US)
  Receive Date: 20200224
  Receipt Date: 20200224
  Transmission Date: 20200409
  Serious: Yes (Other)
  Sender: FDA-Public Use
  Company Number: US-PFIZER INC-2020066540

PATIENT
  Sex: Female

DRUGS (1)
  1. FIBERCON [Suspect]
     Active Substance: CALCIUM POLYCARBOPHIL
     Dosage: 2 DF, UNK

REACTIONS (2)
  - Choking [Unknown]
  - Foreign body in respiratory tract [Unknown]

NARRATIVE: CASE EVENT DATE: 20200210
